FAERS Safety Report 25189575 (Version 2)
Quarter: 2025Q2

REPORT INFORMATION
  Report Type: Report from Study
  Country: DE (occurrence: DE)
  Receive Date: 20250411
  Receipt Date: 20250516
  Transmission Date: 20250716
  Serious: Yes (Hospitalization, Other)
  Sender: EXELIXIS
  Company Number: DE-IPSEN Group, Research and Development-2025-01909

PATIENT

DRUGS (36)
  1. CABOZANTINIB [Suspect]
     Active Substance: CABOZANTINIB
     Indication: Renal cell carcinoma
     Dosage: 40 MG DAILY (MORNING)
     Route: 065
     Dates: start: 20240520, end: 20250203
  2. NIVOLUMAB [Suspect]
     Active Substance: NIVOLUMAB
     Indication: Renal cell carcinoma
     Dates: start: 20240422
  3. NIVOLUMAB [Suspect]
     Active Substance: NIVOLUMAB
     Dates: start: 20240506
  4. NIVOLUMAB [Suspect]
     Active Substance: NIVOLUMAB
     Dates: start: 20240521
  5. NIVOLUMAB [Suspect]
     Active Substance: NIVOLUMAB
     Dates: start: 20240611
  6. NIVOLUMAB [Suspect]
     Active Substance: NIVOLUMAB
     Dates: start: 20240626
  7. NIVOLUMAB [Suspect]
     Active Substance: NIVOLUMAB
     Dates: start: 20240709
  8. NIVOLUMAB [Suspect]
     Active Substance: NIVOLUMAB
     Dates: start: 20240723
  9. NIVOLUMAB [Suspect]
     Active Substance: NIVOLUMAB
     Dates: start: 20240806
  10. NIVOLUMAB [Suspect]
     Active Substance: NIVOLUMAB
     Dates: start: 20240903
  11. NIVOLUMAB [Suspect]
     Active Substance: NIVOLUMAB
     Dates: start: 20240917
  12. NIVOLUMAB [Suspect]
     Active Substance: NIVOLUMAB
     Dates: start: 20241008
  13. NIVOLUMAB [Suspect]
     Active Substance: NIVOLUMAB
     Dates: start: 20241022
  14. NIVOLUMAB [Suspect]
     Active Substance: NIVOLUMAB
     Dates: start: 20241112
  15. NIVOLUMAB [Suspect]
     Active Substance: NIVOLUMAB
     Dates: start: 20241203
  16. NIVOLUMAB [Suspect]
     Active Substance: NIVOLUMAB
     Dates: start: 20241217
  17. NIVOLUMAB [Suspect]
     Active Substance: NIVOLUMAB
     Dates: start: 20250107
  18. NIVOLUMAB [Suspect]
     Active Substance: NIVOLUMAB
     Dates: start: 20250121
  19. NIVOLUMAB [Suspect]
     Active Substance: NIVOLUMAB
     Dates: start: 20250206
  20. Eplerenon puren [Concomitant]
     Indication: Cardiac failure
     Route: 048
  21. Ramipril stada [Concomitant]
     Indication: Hypertension
     Dosage: 2.5 MG, BID
     Route: 048
  22. CARVEDILOL [Concomitant]
     Active Substance: CARVEDILOL
     Indication: Hypertension
     Dosage: 6.25 MG, BID
     Route: 048
  23. PANTOPRAZOLE SODIUM [Concomitant]
     Active Substance: PANTOPRAZOLE SODIUM
     Indication: Prophylaxis
     Dosage: 40 MG, QD
     Route: 048
  24. ATORVASTATIN [Concomitant]
     Active Substance: ATORVASTATIN
     Indication: Prophylaxis
     Route: 048
     Dates: start: 20231201
  25. ASPIRIN [Concomitant]
     Active Substance: ASPIRIN
     Indication: Coronary artery disease
     Route: 048
     Dates: start: 20231201
  26. RANEXA [Concomitant]
     Active Substance: RANOLAZINE
     Indication: Cardiac disorder
     Dosage: 500 MG, BID
     Route: 048
     Dates: start: 20240101
  27. IBUPROFEN [Concomitant]
     Active Substance: IBUPROFEN
     Indication: Pain
     Route: 048
     Dates: start: 20240326
  28. ACETAMINOPHEN [Concomitant]
     Active Substance: ACETAMINOPHEN
     Indication: Pain
     Route: 048
     Dates: start: 20240326
  29. LYRICA [Concomitant]
     Active Substance: PREGABALIN
     Indication: Neuropathy peripheral
     Route: 048
     Dates: start: 20240326
  30. NALOXONE HYDROCHLORIDE\TILIDINE HYDROCHLORIDE [Concomitant]
     Active Substance: NALOXONE HYDROCHLORIDE\TILIDINE HYDROCHLORIDE
     Indication: Pain
     Route: 048
     Dates: start: 20240326
  31. METAMIZOLE [Concomitant]
     Active Substance: METAMIZOLE
     Indication: Pain
     Dosage: 1000 MG, TID
     Route: 048
     Dates: start: 20240417
  32. Zoledronsaure Altan [Concomitant]
     Indication: Metastases to bone
     Route: 042
     Dates: start: 20240417
  33. CALCIUM CARBONATE\CHOLECALCIFEROL [Concomitant]
     Active Substance: CALCIUM CARBONATE\CHOLECALCIFEROL
     Indication: Osteoporosis
     Dosage: 500 MG, QD
     Route: 048
     Dates: start: 20240422
  34. METOCLOPRAMIDE [Concomitant]
     Active Substance: METOCLOPRAMIDE
     Indication: Nausea
     Route: 048
     Dates: start: 20240506
  35. CLOBETASOL [Concomitant]
     Active Substance: CLOBETASOL
     Indication: Plaque shift
     Dates: start: 20240928, end: 20241018
  36. DERMATOP SALBE [Concomitant]
     Indication: Plaque shift
     Dates: start: 20240928, end: 20241018

REACTIONS (3)
  - Colitis [Not Recovered/Not Resolved]
  - Pulmonary embolism [Not Recovered/Not Resolved]
  - Diarrhoea [Not Recovered/Not Resolved]

NARRATIVE: CASE EVENT DATE: 20250102
